FAERS Safety Report 16853836 (Version 1)
Quarter: 2019Q3

REPORT INFORMATION
  Report Type: Spontaneous
  Country: US (occurrence: US)
  Receive Date: 20190804
  Receipt Date: 20190804
  Transmission Date: 20191005
  Serious: Yes (Hospitalization)
  Sender: FDA-Public Use
  Company Number: None

PATIENT
  Sex: Female

DRUGS (1)
  1. XELJANZ [Suspect]
     Active Substance: TOFACITINIB CITRATE
     Indication: RHEUMATOID ARTHRITIS
     Route: 048
     Dates: start: 20190515

REACTIONS (6)
  - Influenza like illness [None]
  - Urinary incontinence [None]
  - Bile duct obstruction [None]
  - Anal incontinence [None]
  - Diverticulum [None]
  - Infection [None]
